FAERS Safety Report 16050761 (Version 1)
Quarter: 2019Q1

REPORT INFORMATION
  Report Type: Spontaneous
  Country: US (occurrence: US)
  Receive Date: 20190308
  Receipt Date: 20190308
  Transmission Date: 20190418
  Serious: No
  Sender: FDA-Public Use
  Company Number: US-TEVA-2019-US-1012766

PATIENT
  Age: 66 Year
  Sex: Female

DRUGS (1)
  1. DESVENLAFAXINE XR TEVA [Suspect]
     Active Substance: DESVENLAFAXINE

REACTIONS (1)
  - Drug ineffective [Unknown]
